FAERS Safety Report 18920828 (Version 1)
Quarter: 2021Q1

REPORT INFORMATION
  Report Type: Spontaneous
  Country: PL (occurrence: PL)
  Receive Date: 20210222
  Receipt Date: 20210222
  Transmission Date: 20210420
  Serious: Yes (Hospitalization)
  Sender: FDA-Public Use
  Company Number: PL-LUPIN PHARMACEUTICALS INC.-2021-01945

PATIENT
  Age: 35 Year
  Sex: Female

DRUGS (4)
  1. RIFAMPIN. [Suspect]
     Active Substance: RIFAMPIN
     Indication: PERICARDITIS TUBERCULOUS
     Dosage: UNK, SCHEDULED FOR 6 MONTHS
     Route: 065
  2. PREDNISOLONE. [Concomitant]
     Active Substance: PREDNISOLONE
     Indication: PERICARDITIS TUBERCULOUS
     Dosage: 30 MILLIGRAM, QD
     Route: 065
  3. ETHAMBUTOL [Suspect]
     Active Substance: ETHAMBUTOL HYDROCHLORIDE
     Indication: PERICARDITIS TUBERCULOUS
     Dosage: UNK, SCHEDULED FOR 3 MONTHS
     Route: 065
  4. PYRAZINAMIDE. [Suspect]
     Active Substance: PYRAZINAMIDE
     Indication: PERICARDITIS TUBERCULOUS
     Dosage: UNK, SCHEDULED FOR 3 MONTHS
     Route: 065

REACTIONS (1)
  - Jaundice [Recovered/Resolved]
